FAERS Safety Report 21493471 (Version 1)
Quarter: 2022Q4

REPORT INFORMATION
  Report Type: Spontaneous
  Country: GB (occurrence: GB)
  Receive Date: 20221021
  Receipt Date: 20221021
  Transmission Date: 20230112
  Serious: Yes (Other)
  Sender: FDA-Public Use
  Company Number: GB-TEVA-2022-GB-2817446

PATIENT
  Sex: Female

DRUGS (2)
  1. COPAXONE [Suspect]
     Active Substance: GLATIRAMER ACETATE
     Indication: Product used for unknown indication
     Route: 065
     Dates: start: 202204
  2. COPAXONE [Suspect]
     Active Substance: GLATIRAMER ACETATE
     Route: 065

REACTIONS (6)
  - Circulatory collapse [Unknown]
  - Confusional state [Recovered/Resolved]
  - Vomiting [Unknown]
  - Erythema [Unknown]
  - Skin discolouration [Unknown]
  - Swelling [Unknown]

NARRATIVE: CASE EVENT DATE: 20220101
